FAERS Safety Report 8222197-8 (Version None)
Quarter: 2012Q1

REPORT INFORMATION
  Report Type: 
  Country: None (occurrence: None)
  Receive Date: 20120320
  Receipt Date: 20120309
  Transmission Date: 20120608
  Serious: Yes (Death, Hospitalization)
  Sender: FDA-Public Use
  Company Number: GB-JNJFOC-20120307227

PATIENT

DRUGS (4)
  1. ACETAMINOPHEN [Suspect]
     Indication: PAIN
     Dosage: CUMULATIVE DOSE EXCEEDING THE DAILY MAXIMUM OF 4G
     Route: 048
  2. ANALGESIC [Suspect]
     Indication: PAIN
     Route: 048
  3. ACETAMINOPHEN [Suspect]
     Route: 048
  4. ACETAMINOPHEN W/ CODEINE [Suspect]
     Indication: PAIN
     Route: 048

REACTIONS (5)
  - SUICIDE ATTEMPT [None]
  - ACCIDENTAL OVERDOSE [None]
  - INTENTIONAL OVERDOSE [None]
  - LIVER INJURY [None]
  - ENCEPHALOPATHY [None]
